FAERS Safety Report 13182330 (Version 1)
Quarter: 2017Q1

REPORT INFORMATION
  Report Type: Spontaneous
  Country: CA (occurrence: CA)
  Receive Date: 20170203
  Receipt Date: 20170203
  Transmission Date: 20170428
  Serious: Yes (Hospitalization)
  Sender: FDA-Public Use
  Company Number: CA-TEVA-736702ACC

PATIENT
  Age: 15 Year
  Sex: Female
  Weight: 37 kg

DRUGS (4)
  1. PREDNISONE. [Concomitant]
     Active Substance: PREDNISONE
  2. VENTOLIN [Concomitant]
     Active Substance: ALBUTEROL SULFATE
  3. IBUPROFEN. [Suspect]
     Active Substance: IBUPROFEN
     Route: 050
  4. TYLENOL [Suspect]
     Active Substance: ACETAMINOPHEN
     Route: 050

REACTIONS (4)
  - Condition aggravated [Recovered/Resolved]
  - Wrong drug administered [Recovered/Resolved]
  - Asthma [Recovered/Resolved]
  - Bronchospasm [Recovered/Resolved]
